FAERS Safety Report 4324608-7 (Version None)
Quarter: 2004Q1

REPORT INFORMATION
  Report Type: 
  Country: None (occurrence: None)
  Receive Date: 20040325
  Receipt Date: 20040325
  Transmission Date: 20041129
  Serious: No
  Sender: FDA-Public Use
  Company Number: None

PATIENT
  Age: 55 Year
  Sex: Female

DRUGS (6)
  1. ATORVASTATIN CALCIUM [Suspect]
     Dosage: 20 MG PO QHS
     Route: 048
     Dates: start: 20030416, end: 20030930
  2. MAG OXIDE [Concomitant]
  3. SALMON OIL [Concomitant]
  4. FOLIC ACID [Concomitant]
  5. HUMIBID DM [Concomitant]
  6. LEVOFLOXACIN [Concomitant]

REACTIONS (3)
  - CONDITION AGGRAVATED [None]
  - HYPERGLYCAEMIA [None]
  - MYALGIA [None]
